FAERS Safety Report 24141579 (Version 1)
Quarter: 2024Q3

REPORT INFORMATION
  Report Type: Spontaneous
  Country: US (occurrence: US)
  Receive Date: 20240726
  Receipt Date: 20240726
  Transmission Date: 20241016
  Serious: Yes (Death, Hospitalization, Other)
  Sender: MSN LABORATORIES
  Company Number: US-MSNLABS-2024MSNLIT01623

PATIENT

DRUGS (3)
  1. PACLITAXEL [Suspect]
     Active Substance: PACLITAXEL
     Indication: Metastatic choriocarcinoma
     Route: 065
  2. ETOPOSIDE [Suspect]
     Active Substance: ETOPOSIDE
     Indication: Metastatic choriocarcinoma
     Dosage: FULL DOSE THERAPY
     Route: 065
  3. CISPLATIN [Suspect]
     Active Substance: CISPLATIN
     Indication: Metastatic choriocarcinoma
     Dosage: 1 CYCLE, 2 CYCLE AND 5 CYCLE
     Route: 065

REACTIONS (6)
  - Immune thrombocytopenia [Fatal]
  - Pulmonary haemorrhage [Fatal]
  - Cerebral haemorrhage [Fatal]
  - Hypoxia [Fatal]
  - Acute respiratory failure [Fatal]
  - Myelosuppression [Fatal]
